FAERS Safety Report 21633029 (Version 5)
Quarter: 2023Q2

REPORT INFORMATION
  Report Type: Report from Study
  Country: MX (occurrence: MX)
  Receive Date: 20221123
  Receipt Date: 20230520
  Transmission Date: 20230721
  Serious: Yes (Other)
  Sender: FDA-Public Use
  Company Number: MX-002147023-NVSC2022MX160548

PATIENT
  Age: 87 Year
  Sex: Female
  Weight: 65 kg

DRUGS (13)
  1. ENTRESTO [Suspect]
     Active Substance: SACUBITRIL\VALSARTAN
     Indication: Hypertension
     Dosage: 0.5 DOSAGE FORM, QD
     Route: 048
     Dates: start: 202111
  2. ENTRESTO [Suspect]
     Active Substance: SACUBITRIL\VALSARTAN
     Dosage: 1 DOSAGE FORM, BID (ONE SHOT IN THE MORNING AND ONE SHOT AT NIGHT. EVERY 12 HOURS)
     Route: 048
  3. ENTRESTO [Suspect]
     Active Substance: SACUBITRIL\VALSARTAN
     Dosage: UNK, QD (HALF TABLET OR QUARTER TABLET)
     Route: 048
  4. ENTRESTO [Suspect]
     Active Substance: SACUBITRIL\VALSARTAN
     Dosage: 1 DOSAGE FORM, QD
     Route: 048
     Dates: start: 202209, end: 202210
  5. ENTRESTO [Suspect]
     Active Substance: SACUBITRIL\VALSARTAN
     Dosage: 0.25 DOSAGE FORM (1/4 DF (50 MG)), QD
     Route: 048
     Dates: start: 202210, end: 20221101
  6. ENTRESTO [Suspect]
     Active Substance: SACUBITRIL\VALSARTAN
     Dosage: 0.5 DOSAGE FORM (1/2 DF (50 MG)), QD
     Route: 048
     Dates: start: 20221102
  7. FUROSEMIDE [Concomitant]
     Active Substance: FUROSEMIDE
     Indication: Fluid retention
     Dosage: 1 DOSAGE FORM, QD (20MG)
     Route: 048
     Dates: start: 202209
  8. SPIRONOLACTONE [Concomitant]
     Active Substance: SPIRONOLACTONE
     Indication: Fluid retention
     Dosage: 1 DOSAGE FORM, QD (50MG)
     Route: 048
     Dates: start: 202209
  9. MICCIL [Concomitant]
     Indication: Fluid retention
     Dosage: 1 DOSAGE FORM, QD
     Route: 048
     Dates: start: 202210
  10. CIRUELAX [Concomitant]
     Indication: Laxative supportive care
     Dosage: 2 DOSAGE FORM, QHS (AT NIGHT) (STARTED A YEAR AGO)
     Route: 048
  11. AMINO ACIDS, SOURCE UNSPECIFIED [Concomitant]
     Active Substance: AMINO ACIDS, SOURCE UNSPECIFIED
     Indication: Gastrointestinal disorder
     Dosage: 1 DOSAGE FORM, BID (ONE IN THE MORNING AND ONE AT NIGHT) (STARTED A YEAR AGO) (SMASH THE CAPSULE)
     Route: 048
  12. CLONAZEPAM [Concomitant]
     Active Substance: CLONAZEPAM
     Indication: Insomnia
     Dosage: 1 DOSAGE FORM, QD (STARTED 5 YEARS AGO APPROX)
     Route: 048
  13. INSULIN NOS [Concomitant]
     Active Substance: INSULIN NOS
     Indication: Product used for unknown indication
     Dosage: 11 UNITS IN MORNING AND 4 AT NIGHT, BID
     Route: 030

REACTIONS (6)
  - Hypotension [Unknown]
  - Hypertension [Not Recovered/Not Resolved]
  - Wrong technique in product usage process [Not Recovered/Not Resolved]
  - Inappropriate schedule of product administration [Not Recovered/Not Resolved]
  - Product prescribing issue [Not Recovered/Not Resolved]
  - Prescribed underdose [Not Recovered/Not Resolved]

NARRATIVE: CASE EVENT DATE: 20211101
